FAERS Safety Report 16759124 (Version 1)
Quarter: 2019Q4

REPORT INFORMATION
  Report Type: Spontaneous
  Country: US (occurrence: US)
  Receive Date: 20190829
  Receipt Date: 20190829
  Transmission Date: 20200122
  Serious: Yes (Hospitalization)
  Sender: FDA-Public Use
  Company Number: None

PATIENT
  Sex: Female

DRUGS (8)
  1. VITAMIN D3 CAP 2000 UNIT [Concomitant]
  2. DIOVAN TAB 80 MG [Concomitant]
  3. HUMIRA [Suspect]
     Active Substance: ADALIMUMAB
     Indication: RHEUMATOID ARTHRITIS
     Dosage: ?          OTHER FREQUENCY:WEEKLY;?
     Route: 058
     Dates: start: 20151026
  4. LEXAPRO TAB 5 MG [Concomitant]
  5. SPIRONOLACTONE TAB 50 MG [Concomitant]
  6. NEXIUM GRA 10 MG DR [Concomitant]
  7. PHENYTOIN EX CAP 100 MG [Concomitant]
  8. K-TAB TAB 10 MEQ CR [Concomitant]

REACTIONS (2)
  - Fall [None]
  - Infection [None]
